FAERS Safety Report 12212145 (Version 6)
Quarter: 2017Q2

REPORT INFORMATION
  Report Type: Report from Study
  Country: FR (occurrence: FR)
  Receive Date: 20160325
  Receipt Date: 20170428
  Transmission Date: 20170830
  Serious: Yes (Hospitalization, Other)
  Sender: FDA-Public Use
  Company Number: FR-PFIZER INC-2015244581

PATIENT
  Age: 72 Year
  Sex: Male

DRUGS (5)
  1. SOTALEX [Concomitant]
     Active Substance: SOTALOL
     Indication: ARRHYTHMIA
     Dosage: 80 MG, 2X/DAY
     Route: 048
     Dates: start: 20130101
  2. LEVOTHYROX [Concomitant]
     Active Substance: LEVOTHYROXINE
     Indication: HYPOTHYROIDISM
     Dosage: 75 ?G, ALTERNATE DAY (EVEN DAYS)
     Route: 048
     Dates: start: 20110101
  3. LEVOTHYROX [Concomitant]
     Active Substance: LEVOTHYROXINE
     Dosage: 100 ?G, ALTERNATE DAY (ODD DAYS)
     Route: 048
     Dates: start: 20110101
  4. LOVENOX [Concomitant]
     Active Substance: ENOXAPARIN SODIUM
     Indication: THROMBOSIS PROPHYLAXIS
     Dosage: UNK
     Dates: start: 201506
  5. AXITINIB [Suspect]
     Active Substance: AXITINIB
     Indication: METASTATIC RENAL CELL CARCINOMA
     Dosage: 5 MG, 2X/DAY
     Dates: start: 20150601, end: 20150621

REACTIONS (10)
  - Epilepsy [Unknown]
  - Nausea [Unknown]
  - Skin toxicity [Unknown]
  - Headache [Unknown]
  - Pyrexia [Unknown]
  - Disability [Unknown]
  - Hemiplegia [Not Recovered/Not Resolved]
  - Hypertension [Unknown]
  - Vomiting [Unknown]
  - Facial paralysis [Unknown]

NARRATIVE: CASE EVENT DATE: 201506
